FAERS Safety Report 4768101-6 (Version None)
Quarter: 2005Q3

REPORT INFORMATION
  Report Type: 
  Country: None (occurrence: None)
  Receive Date: 20050912
  Receipt Date: 20050912
  Transmission Date: 20060218
  Serious: Yes (Other)
  Sender: FDA-Public Use
  Company Number: None

PATIENT
  Age: 31 Year
  Sex: Female
  Weight: 58.0604 kg

DRUGS (2)
  1. ZOLOFT [Suspect]
     Indication: GENERALISED ANXIETY DISORDER
     Dosage: 1 PILL DAILY DO
     Route: 048
     Dates: start: 20030601, end: 20040601
  2. ZOLOFT [Suspect]
     Indication: GENERALISED ANXIETY DISORDER
     Dosage: 1 PILL DAILY DO
     Route: 048
     Dates: start: 20050201, end: 20050901

REACTIONS (3)
  - ANGER [None]
  - DRUG WITHDRAWAL SYNDROME [None]
  - SELF-INJURIOUS IDEATION [None]
